FAERS Safety Report 21908665 (Version 1)
Quarter: 2023Q1

REPORT INFORMATION
  Report Type: Spontaneous
  Country: US (occurrence: US)
  Receive Date: 20230125
  Receipt Date: 20230125
  Transmission Date: 20230418
  Serious: No
  Sender: FDA-Public Use
  Company Number: US-LANNETT COMPANY, INC.-US-2022LAN000134

PATIENT
  Sex: Female

DRUGS (1)
  1. DOXEPIN HYDROCHLORIDE [Suspect]
     Active Substance: DOXEPIN HYDROCHLORIDE
     Indication: Sleep disorder
     Dosage: 4 1/2 MILLIGRAM, QD (EVERY NIGHT)
     Route: 048

REACTIONS (4)
  - Amnesia [Unknown]
  - Aphasia [Unknown]
  - Nervousness [Unknown]
  - Insomnia [Unknown]
